FAERS Safety Report 13856070 (Version 1)
Quarter: 2017Q3

REPORT INFORMATION
  Report Type: Spontaneous
  Country: US (occurrence: US)
  Receive Date: 20170810
  Receipt Date: 20170810
  Transmission Date: 20171127
  Serious: Yes (Hospitalization, Other)
  Sender: FDA-Public Use
  Company Number: US-IMPAX LABORATORIES, INC-2017-IPXL-02363

PATIENT
  Age: 66 Year
  Sex: Male

DRUGS (5)
  1. CABERGOLINE. [Suspect]
     Active Substance: CABERGOLINE
     Dosage: TITRATION TO 2 MG DAILY OVER 12 MONTHS
     Route: 065
  2. CABERGOLINE. [Suspect]
     Active Substance: CABERGOLINE
     Dosage: 4 MG, DAILY
     Route: 065
  3. CABERGOLINE. [Suspect]
     Active Substance: CABERGOLINE
     Indication: PROLACTIN-PRODUCING PITUITARY TUMOUR
     Dosage: 0.5 MG, 2 /WEEK
     Route: 065
  4. CABERGOLINE. [Suspect]
     Active Substance: CABERGOLINE
     Dosage: DECREASED TO 0.5 MG, 2/WEEK
  5. CABERGOLINE. [Suspect]
     Active Substance: CABERGOLINE
     Dosage: INCREASED TO 3 MG, DAILY
     Route: 065

REACTIONS (4)
  - Radiation necrosis [Recovering/Resolving]
  - Drug resistance [Unknown]
  - Ischaemic stroke [Recovering/Resolving]
  - Neoplasm progression [Recovering/Resolving]
